FAERS Safety Report 10744716 (Version 1)
Quarter: 2015Q1

REPORT INFORMATION
  Report Type: Spontaneous
  Country: US (occurrence: None)
  Receive Date: 20150126
  Receipt Date: 20150126
  Transmission Date: 20150721
  Serious: Yes (Other)
  Sender: FDA-Public Use
  Company Number: None

PATIENT
  Age: 55 Year
  Sex: Female

DRUGS (10)
  1. PEPCID [Concomitant]
     Active Substance: FAMOTIDINE
  2. SOLU-MEDROL [Concomitant]
     Active Substance: METHYLPREDNISOLONE SODIUM SUCCINATE
  3. BACLOFEN. [Concomitant]
     Active Substance: BACLOFEN
  4. MOTRIN [Concomitant]
     Active Substance: IBUPROFEN
  5. PROTOPIC TOP [Concomitant]
  6. CELEXA [Concomitant]
     Active Substance: CITALOPRAM HYDROBROMIDE
  7. AMPYRA [Suspect]
     Active Substance: DALFAMPRIDINE
     Indication: MULTIPLE SCLEROSIS
     Route: 048
     Dates: start: 201006
  8. RIBIF [Concomitant]
  9. HYCROCORTISONE TOP [Concomitant]
  10. MIRVASO [Concomitant]
     Active Substance: BRIMONIDINE TARTRATE

REACTIONS (2)
  - Disease recurrence [None]
  - Urinary tract infection [None]

NARRATIVE: CASE EVENT DATE: 20150123
